FAERS Safety Report 4585371-8 (Version None)
Quarter: 2005Q1

REPORT INFORMATION
  Report Type: 
  Country: None (occurrence: None)
  Receive Date: 20050214
  Receipt Date: 20050204
  Transmission Date: 20050727
  Serious: Yes (Other)
  Sender: FDA-Public Use
  Company Number: 2005025551

PATIENT
  Sex: Female
  Weight: 74.3899 kg

DRUGS (8)
  1. LIPITOR [Suspect]
     Indication: BLOOD CHOLESTEROL
     Dosage: ORAL
     Route: 048
     Dates: start: 20040901
  2. RISEDRONATE SODIUM (RISEDRONATE SODIUM) [Concomitant]
  3. ACETYLSALICYLIC ACID SRT [Concomitant]
  4. CALCITONIN, SALMON (CALCITONIN, SALMON) [Concomitant]
  5. LEVOTHYROXINE SODIUM [Concomitant]
  6. OXYBUTYNIN CHLORIDE [Concomitant]
  7. GLIPIZIDE [Concomitant]
  8. SOTALOL HCL [Concomitant]

REACTIONS (9)
  - ALANINE AMINOTRANSFERASE INCREASED [None]
  - ASPARTATE AMINOTRANSFERASE INCREASED [None]
  - ASTHENIA [None]
  - BLOOD ALKALINE PHOSPHATASE INCREASED [None]
  - BLOOD BILIRUBIN INCREASED [None]
  - CHROMATURIA [None]
  - FATIGUE [None]
  - JAUNDICE [None]
  - VOMITING [None]
